FAERS Safety Report 25013502 (Version 1)
Quarter: 2025Q1

REPORT INFORMATION
  Report Type: Spontaneous
  Country: US (occurrence: US)
  Receive Date: 20250226
  Receipt Date: 20250226
  Transmission Date: 20250408
  Serious: No
  Sender: UCB
  Company Number: US-UCBSA-2024048975

PATIENT
  Age: 39 Year
  Sex: Female

DRUGS (6)
  1. KEPPRA [Suspect]
     Active Substance: LEVETIRACETAM
     Indication: Temporal lobe epilepsy
     Dosage: 500 MILLIGRAM, 2X/DAY (BID)
     Dates: start: 202007
  2. KEPPRA [Suspect]
     Active Substance: LEVETIRACETAM
     Indication: Ictal bradycardia syndrome
     Route: 042
  3. KEPPRA [Suspect]
     Active Substance: LEVETIRACETAM
     Indication: Off label use
  4. EPINEPHRINE [Concomitant]
     Active Substance: EPINEPHRINE
     Indication: Pulseless electrical activity
  5. ATIVAN [Concomitant]
     Active Substance: LORAZEPAM
     Indication: Temporal lobe epilepsy
  6. ATIVAN [Concomitant]
     Active Substance: LORAZEPAM
     Indication: Ictal bradycardia syndrome

REACTIONS (3)
  - Drug ineffective for unapproved indication [Unknown]
  - Product dose omission issue [Unknown]
  - Off label use [Unknown]
